FAERS Safety Report 13052103 (Version 1)
Quarter: 2016Q4

REPORT INFORMATION
  Report Type: Spontaneous
  Country: US (occurrence: US)
  Receive Date: 20161221
  Receipt Date: 20161221
  Transmission Date: 20170207
  Serious: Yes (Other)
  Sender: FDA-Public Use
  Company Number: US-PFIZER INC-2016584048

PATIENT
  Sex: Female

DRUGS (1)
  1. METHOTREXATE SODIUM. [Suspect]
     Active Substance: METHOTREXATE SODIUM
     Indication: PLACENTA PRAEVIA
     Dosage: 1 MG/KG, WEEKLY (FROM 1 ST POSTPARTUM DAY, 6 DOSES)
     Route: 030

REACTIONS (3)
  - Product use issue [Unknown]
  - Endometritis [Unknown]
  - Pyrexia [Unknown]
